FAERS Safety Report 16740524 (Version 1)
Quarter: 2019Q3

REPORT INFORMATION
  Report Type: Spontaneous
  Country: CA (occurrence: CA)
  Receive Date: 20190826
  Receipt Date: 20190826
  Transmission Date: 20191005
  Serious: Yes (Life-Threatening, Hospitalization, Other)
  Sender: FDA-Public Use
  Company Number: CA-ELI_LILLY_AND_COMPANY-CA201908007799

PATIENT
  Age: 12 Year
  Sex: Female
  Weight: 43 kg

DRUGS (3)
  1. ZYPREXA [Suspect]
     Active Substance: OLANZAPINE
     Indication: AGITATION
     Dosage: 5 MG, EVERY 6 HRS
     Route: 048
  2. ZYPREXA [Suspect]
     Active Substance: OLANZAPINE
     Indication: AGITATION
     Dosage: 5 MG, EVERY 6 HRS
     Route: 030
  3. HALDOL [Suspect]
     Active Substance: HALOPERIDOL
     Indication: AGITATION
     Dosage: 1 MG, BID
     Route: 042

REACTIONS (10)
  - Cardiac failure [Unknown]
  - Acute kidney injury [Unknown]
  - Off label use [Unknown]
  - Haemodynamic test abnormal [Unknown]
  - Hyperthermia [Unknown]
  - Cardiac arrest [Unknown]
  - Hypocalcaemia [Unknown]
  - Hyperphosphataemia [Unknown]
  - Neuroleptic malignant syndrome [Unknown]
  - Rhabdomyolysis [Unknown]
